FAERS Safety Report 4279204-7 (Version None)
Quarter: 2004Q1

REPORT INFORMATION
  Report Type: 
  Country: None (occurrence: None)
  Receive Date: 20040123
  Receipt Date: 20040113
  Transmission Date: 20041129
  Serious: Yes (Hospitalization, Disabling, Other)
  Sender: FDA-Public Use
  Company Number: 2003119112

PATIENT
  Age: 54 Year
  Sex: Female
  Weight: 90.7194 kg

DRUGS (12)
  1. LIPITOR [Suspect]
     Indication: BLOOD CHOLESTEROL INCREASED
     Dosage: 10 MG (DAILY), ORAL
     Route: 048
     Dates: start: 19980318, end: 20030529
  2. CYCLOSPORINE [Suspect]
     Indication: LIVER TRANSPLANT
     Dosage: 250 MG (BID), ORAL
     Route: 048
     Dates: start: 19910313
  3. PREDNISONE [Concomitant]
  4. AZATHIOPRINE [Concomitant]
  5. HYZAAR [Concomitant]
  6. AMLODIPINE BESYLATE [Concomitant]
  7. PROVELLA - 14 (MEDROXYPROGESTERONE ACETATE, ESTROGENS CONJUGATED) [Concomitant]
  8. ALLOPURINOL [Concomitant]
  9. SIROLIMUS (SIROLIMUS) [Concomitant]
  10. OMEPRAZOLE [Concomitant]
  11. EZETIMIBE (EZETIMIBE) [Concomitant]
  12. EPOETIN ALFA (EPOETIN ALFA) [Concomitant]

REACTIONS (20)
  - ASTHENIA [None]
  - BLOOD CHLORIDE INCREASED [None]
  - BLOOD MAGNESIUM DECREASED [None]
  - CRYSTAL URINE PRESENT [None]
  - DIARRHOEA [None]
  - DRUG LEVEL INCREASED [None]
  - DYSPNOEA [None]
  - ELECTROLYTE IMBALANCE [None]
  - FATIGUE [None]
  - MITOCHONDRIAL MYOPATHY [None]
  - MUSCULAR WEAKNESS [None]
  - MYOPATHY [None]
  - NEUROPATHY [None]
  - RENAL FAILURE [None]
  - RENAL FAILURE ACUTE [None]
  - RENAL TRANSPLANT [None]
  - RENAL TUBULAR ACIDOSIS [None]
  - TRANSPLANT FAILURE [None]
  - URATE NEPHROPATHY [None]
  - URINARY TRACT INFECTION [None]
